FAERS Safety Report 12836386 (Version 1)
Quarter: 2016Q4

REPORT INFORMATION
  Report Type: Report from Study
  Country: US (occurrence: US)
  Receive Date: 20161011
  Receipt Date: 20161011
  Transmission Date: 20170207
  Serious: Yes (Hospitalization)
  Sender: FDA-Public Use
  Company Number: US-EISAI MEDICAL RESEARCH-EC-2016-020943

PATIENT
  Age: 63 Year
  Sex: Female
  Weight: 70.3 kg

DRUGS (25)
  1. LORAZEPAM. [Concomitant]
     Active Substance: LORAZEPAM
  2. SCOPALAMINE [Concomitant]
     Active Substance: SCOPOLAMINE
  3. ALLOPURINOL. [Concomitant]
     Active Substance: ALLOPURINOL
  4. ZOLPIDEM [Concomitant]
     Active Substance: ZOLPIDEM\ZOLPIDEM TARTRATE
  5. MORPHINE [Concomitant]
     Active Substance: MORPHINE
  6. OFLOXACIN. [Concomitant]
     Active Substance: OFLOXACIN
  7. DENOSUMAB [Concomitant]
     Active Substance: DENOSUMAB
  8. CALCIUM CARBONATE. [Concomitant]
     Active Substance: CALCIUM CARBONATE
  9. MULTIPLE VITAMIN [Concomitant]
     Active Substance: VITAMINS
  10. FEXOFENADINE [Concomitant]
     Active Substance: FEXOFENADINE\FEXOFENADINE HYDROCHLORIDE
  11. ONDANSETRON [Concomitant]
     Active Substance: ONDANSETRON
  12. MAGNESIUM [Concomitant]
     Active Substance: MAGNESIUM
  13. GABAPENTIN. [Concomitant]
     Active Substance: GABAPENTIN
  14. DOCUSATE SODIUM. [Concomitant]
     Active Substance: DOCUSATE SODIUM
  15. LIDOCAINE. [Concomitant]
     Active Substance: LIDOCAINE
  16. PROCHLORPERAZINE. [Concomitant]
     Active Substance: PROCHLORPERAZINE
  17. ESCITALOPRAM [Concomitant]
     Active Substance: ESCITALOPRAM OXALATE
  18. POTASSIUM CHLORIDE. [Concomitant]
     Active Substance: POTASSIUM CHLORIDE
  19. ERIBULIN [Suspect]
     Active Substance: ERIBULIN
     Indication: BREAST CANCER METASTATIC
     Route: 041
     Dates: start: 20160714, end: 20160908
  20. HYDROMORPHONE HCL [Concomitant]
     Active Substance: HYDROMORPHONE HYDROCHLORIDE
  21. HYDROCORTISONE. [Concomitant]
     Active Substance: HYDROCORTISONE
  22. FLUTICASONE [Concomitant]
     Active Substance: FLUTICASONE\FLUTICASONE PROPIONATE
  23. FUROSEMIDE. [Concomitant]
     Active Substance: FUROSEMIDE
  24. POLYETHYLENE GLYCOL [Concomitant]
     Active Substance: POLYETHYLENE GLYCOLS
  25. PROBIOTICS CAPS [Concomitant]

REACTIONS (8)
  - Bursitis [Recovering/Resolving]
  - Pneumonia [Not Recovered/Not Resolved]
  - Cellulitis [Recovering/Resolving]
  - Depressed level of consciousness [Unknown]
  - Metabolic encephalopathy [Recovering/Resolving]
  - Febrile neutropenia [Recovered/Resolved]
  - Lactic acidosis [Recovered/Resolved]
  - Sepsis [Unknown]

NARRATIVE: CASE EVENT DATE: 20161001
